FAERS Safety Report 9309623 (Version 1)
Quarter: 2013Q2

REPORT INFORMATION
  Report Type: Spontaneous
  Country: US (occurrence: US)
  Receive Date: 20130525
  Receipt Date: 20130525
  Transmission Date: 20140414
  Serious: Yes (Other)
  Sender: FDA-Public Use
  Company Number: US-BRISTOL-MYERS SQUIBB COMPANY-18585661

PATIENT
  Age: 70 Year
  Sex: Female
  Weight: 72.56 kg

DRUGS (5)
  1. BYDUREON 2MG VIAL + SYRINGE [Suspect]
     Route: 058
     Dates: start: 20130104
  2. KOMBOGLYZE [Concomitant]
     Indication: TYPE 2 DIABETES MELLITUS
     Route: 048
  3. LANTUS [Concomitant]
     Indication: TYPE 2 DIABETES MELLITUS
     Route: 058
  4. ZOFRAN [Concomitant]
     Indication: NOROVIRUS TEST POSITIVE
     Route: 048
     Dates: start: 20130111
  5. LOMOTIL [Concomitant]
     Indication: NOROVIRUS TEST POSITIVE
     Route: 048
     Dates: start: 20130111

REACTIONS (6)
  - Norovirus test positive [Recovering/Resolving]
  - Dehydration [Recovering/Resolving]
  - Weight decreased [Not Recovered/Not Resolved]
  - Blood glucose decreased [Recovering/Resolving]
  - Drug dose omission [Unknown]
  - Off label use [Unknown]
